FAERS Safety Report 24755305 (Version 1)
Quarter: 2024Q4

REPORT INFORMATION
  Report Type: Other
  Country: IT (occurrence: IT)
  Receive Date: 20241219
  Receipt Date: 20241219
  Transmission Date: 20250114
  Serious: Yes (Other)
  Sender: GLENMARK
  Company Number: None

PATIENT

DRUGS (4)
  1. APREPITANT [Interacting]
     Active Substance: APREPITANT
     Indication: Prophylaxis of nausea and vomiting
     Dosage: 80 MILLIGRAM (DOSAGE FORM : CAPSULE )
     Route: 048
     Dates: start: 20240919, end: 20240919
  2. IFOSFAMIDE [Interacting]
     Active Substance: IFOSFAMIDE
     Indication: Hepatic sarcoma
     Dosage: 3480 MILLIGRAM (3 G/MQ, ~INTRAVENOUS (NOT OTHERWISE SPECIFIED))
     Route: 042
     Dates: start: 20240919, end: 20240919
  3. VINCRISTINE [Concomitant]
     Active Substance: VINCRISTINE
     Indication: Hepatic sarcoma
     Dosage: 1.74 MILLIGRAM (1.5 MG/MQ)
     Route: 042
     Dates: start: 20240919, end: 20240919
  4. ONDANSETRON [Concomitant]
     Active Substance: ONDANSETRON
     Indication: Product used for unknown indication
     Dosage: 6 MILLIGRAM
     Route: 065
     Dates: start: 20240919, end: 20240922

REACTIONS (3)
  - Generalised tonic-clonic seizure [Recovered/Resolved]
  - Agitation [Recovered/Resolved]
  - Drug interaction [Unknown]

NARRATIVE: CASE EVENT DATE: 20240919
